FAERS Safety Report 8386525-5 (Version None)
Quarter: 2012Q2

REPORT INFORMATION
  Report Type: 
  Country: None (occurrence: None)
  Receive Date: 20120525
  Receipt Date: 20110705
  Transmission Date: 20120825
  Serious: No
  Sender: FDA-Public Use
  Company Number: US-GLAXOSMITHKLINE-A0917378A

PATIENT
  Age: 69 Year
  Sex: Female

DRUGS (2)
  1. VERAMYST [Suspect]
     Indication: RHINITIS ALLERGIC
     Dosage: 2SPR PER DAY
     Route: 045
     Dates: end: 20100309
  2. AMLODIPINE BESYLATE [Concomitant]

REACTIONS (4)
  - SINUSITIS [None]
  - NASAL CONGESTION [None]
  - ADVERSE EVENT [None]
  - DRUG INEFFECTIVE [None]
